FAERS Safety Report 9467481 (Version 1)
Quarter: 2013Q3

REPORT INFORMATION
  Report Type: Spontaneous
  Country: US (occurrence: US)
  Receive Date: 20130821
  Receipt Date: 20130821
  Transmission Date: 20140515
  Serious: Yes (Hospitalization)
  Sender: FDA-Public Use
  Company Number: US-ASTRAZENECA-2013SE64193

PATIENT
  Age: 701 Month
  Sex: Male
  Weight: 99.8 kg

DRUGS (12)
  1. NEXIUM [Suspect]
     Indication: GASTROOESOPHAGEAL REFLUX DISEASE
     Route: 048
     Dates: start: 2008, end: 201203
  2. ONGLYZA [Suspect]
     Indication: DIABETES MELLITUS
     Route: 048
     Dates: start: 2012
  3. LISINOPRIL (NON AZ PRODUCT) [Suspect]
     Indication: PROPHYLAXIS
     Route: 048
     Dates: start: 2011
  4. LISINOPRIL (NON AZ PRODUCT) [Suspect]
     Indication: BLOOD PRESSURE ABNORMAL
     Route: 048
     Dates: start: 2011
  5. PROTONIX [Concomitant]
     Indication: GASTROOESOPHAGEAL REFLUX DISEASE
     Route: 048
     Dates: start: 2012
  6. CARVEDILOL [Concomitant]
     Indication: COAGULOPATHY
     Route: 048
     Dates: start: 2012
  7. AMARYL [Concomitant]
     Indication: DIABETES MELLITUS
     Route: 048
     Dates: start: 2012
  8. TIKOSYN [Concomitant]
     Indication: ARRHYTHMIA
     Route: 048
     Dates: start: 2012
  9. ASPIRIN [Concomitant]
     Indication: COAGULOPATHY
     Route: 048
  10. LIPITOR [Concomitant]
     Indication: BLOOD CHOLESTEROL ABNORMAL
     Route: 048
     Dates: start: 201301
  11. IPRATROPIUM BROMIDE [Concomitant]
     Indication: DYSPNOEA
     Route: 045
     Dates: start: 2009
  12. ALBUTEROL SULFATE [Concomitant]
     Indication: DYSPNOEA
     Route: 045
     Dates: start: 2009

REACTIONS (6)
  - Myocardial infarction [Unknown]
  - Arrhythmia [Not Recovered/Not Resolved]
  - Allergic cough [Unknown]
  - Weight decreased [Unknown]
  - Oesophagitis [Unknown]
  - Gastritis [Unknown]
